FAERS Safety Report 10014656 (Version 3)
Quarter: 2014Q2

REPORT INFORMATION
  Report Type: Spontaneous
  Country: US (occurrence: US)
  Receive Date: 20140317
  Receipt Date: 20140521
  Transmission Date: 20141212
  Serious: Yes (Other)
  Sender: FDA-Public Use
  Company Number: US-PFIZER INC-2014073766

PATIENT
  Age: 64 Year
  Sex: Female
  Weight: 83.45 kg

DRUGS (1)
  1. LYRICA [Suspect]
     Indication: NERVOUS SYSTEM DISORDER
     Dosage: 150 MG, 3X/DAY
     Dates: start: 2013

REACTIONS (1)
  - Arthropathy [Unknown]
